FAERS Safety Report 19145940 (Version 1)
Quarter: 2021Q2

REPORT INFORMATION
  Report Type: Spontaneous
  Country: IT (occurrence: IT)
  Receive Date: 20210416
  Receipt Date: 20210416
  Transmission Date: 20210717
  Serious: Yes (Other)
  Sender: FDA-Public Use
  Company Number: IT-HIKMA PHARMACEUTICALS USA INC.-IT-H14001-21-54129

PATIENT
  Age: 47 Year
  Sex: Male
  Weight: 74 kg

DRUGS (4)
  1. FLUOROURACILE [Suspect]
     Active Substance: FLUOROURACIL
     Indication: BLADDER CANCER STAGE IV
     Dosage: 5 G/100 ML
     Route: 042
     Dates: start: 20210212
  2. FOLINA [FOLIC ACID] [Suspect]
     Active Substance: FOLIC ACID
     Indication: BLADDER CANCER STAGE IV
     Dosage: 15 MG/2 ML
     Route: 042
     Dates: start: 20210212
  3. IRINOTECAN [Suspect]
     Active Substance: IRINOTECAN
     Indication: BLADDER CANCER STAGE IV
     Route: 042
     Dates: start: 20210212
  4. FLUOROURACILE [Suspect]
     Active Substance: FLUOROURACIL
     Dates: start: 20210212

REACTIONS (2)
  - Hyperbilirubinaemia [Unknown]
  - Hypertransaminasaemia [Unknown]

NARRATIVE: CASE EVENT DATE: 20210317
